FAERS Safety Report 6029385-X (Version None)
Quarter: 2009Q1

REPORT INFORMATION
  Report Type: 
  Country: None (occurrence: None)
  Receive Date: 20090105
  Receipt Date: 20081222
  Transmission Date: 20090719
  Serious: Yes (Life-Threatening)
  Sender: FDA-Public Use
  Company Number: 2008TJ0301

PATIENT
  Age: 46 Year
  Sex: Female

DRUGS (3)
  1. TWINJECT 0.3 [Suspect]
     Indication: ANAPHYLACTIC REACTION
     Dosage: 0.3MG, AS NEEDED, SUBCUTANEOUS/INTRAMUSCULAR
     Dates: start: 20081208, end: 20081208
  2. SYNTHROID [Concomitant]
  3. CRESTOR [Concomitant]

REACTIONS (2)
  - DEVICE MALFUNCTION [None]
  - PRODUCT QUALITY ISSUE [None]
